FAERS Safety Report 9396856 (Version 3)
Quarter: 2013Q3

REPORT INFORMATION
  Report Type: Spontaneous
  Country: DE (occurrence: DE)
  Receive Date: 20130712
  Receipt Date: 20130923
  Transmission Date: 20140515
  Serious: No
  Sender: FDA-Public Use
  Company Number: DE-AMGEN-DEUSP2013048315

PATIENT
  Age: 79 Year
  Sex: Female

DRUGS (1)
  1. MIMPARA [Suspect]
     Indication: HYPERPARATHYROIDISM PRIMARY
     Dosage: 60 MG IN THE MORNING AND 30 MG IN THE EVENING, UNK
     Route: 065

REACTIONS (3)
  - Blood creatinine increased [Unknown]
  - Glomerular filtration rate abnormal [Unknown]
  - Hypocalcaemia [Unknown]
